FAERS Safety Report 4323247-1 (Version None)
Quarter: 2004Q1

REPORT INFORMATION
  Report Type: 
  Country: None (occurrence: None)
  Receive Date: 20040322
  Receipt Date: 20040308
  Transmission Date: 20041129
  Serious: Yes (Hospitalization)
  Sender: FDA-Public Use
  Company Number: US068428

PATIENT
  Age: 63 Year
  Sex: Female

DRUGS (9)
  1. ENBREL [Suspect]
     Indication: RHEUMATOID ARTHRITIS
     Dosage: 25 MG, 2 IN 1 WEEK, SC
     Route: 058
     Dates: start: 20030605
  2. METHOTREXATE [Suspect]
     Dosage: 15 MG, 1 IN 1 WEEK
  3. ALLOPURINOL [Concomitant]
  4. LISINOPRIL [Concomitant]
  5. XIPAMIDE [Concomitant]
  6. BETAXOLOL [Concomitant]
  7. ROFECOXIB [Concomitant]
  8. INSULIN [Concomitant]
  9. PANTOPRAZOLE [Concomitant]

REACTIONS (4)
  - EYELID RETRACTION [None]
  - FACIAL PARESIS [None]
  - HERPES SIMPLEX [None]
  - LACRIMATION INCREASED [None]
